FAERS Safety Report 20618067 (Version 2)
Quarter: 2022Q1

REPORT INFORMATION
  Report Type: Report from Study
  Country: RU (occurrence: RU)
  Receive Date: 20220321
  Receipt Date: 20220324
  Transmission Date: 20220424
  Serious: Yes (Other)
  Sender: FDA-Public Use
  Company Number: RU-LUNDBECK-DKLU3045792

PATIENT
  Age: 43 Year
  Sex: Male

DRUGS (1)
  1. VORTIOXETINE [Suspect]
     Active Substance: VORTIOXETINE
     Indication: Product used for unknown indication
     Dosage: UNK
     Route: 065

REACTIONS (4)
  - Suicidal ideation [Unknown]
  - Therapeutic product effect decreased [Unknown]
  - Anxiety [Unknown]
  - Sleep disorder [Unknown]
